FAERS Safety Report 16730847 (Version 2)
Quarter: 2019Q3

REPORT INFORMATION
  Report Type: Spontaneous
  Country: CH (occurrence: CH)
  Receive Date: 20190822
  Receipt Date: 20190823
  Transmission Date: 20191005
  Serious: Yes (Death)
  Sender: FDA-Public Use
  Company Number: PHHY2019CH196112

PATIENT

DRUGS (1)
  1. METHOTREXATE. [Suspect]
     Active Substance: METHOTREXATE
     Indication: RHEUMATOID ARTHRITIS
     Dosage: UNK UNK, QD (FOR 10 DAYS)
     Route: 065

REACTIONS (3)
  - Thrombocytopenia [Fatal]
  - Agranulocytosis [Fatal]
  - Product prescribing error [Unknown]
